FAERS Safety Report 24336286 (Version 1)
Quarter: 2024Q3

REPORT INFORMATION
  Report Type: Report from Study
  Country: US (occurrence: US)
  Receive Date: 20240919
  Receipt Date: 20240919
  Transmission Date: 20241017
  Serious: No
  Sender: ROCHE
  Company Number: US-ROCHE-3513528

PATIENT
  Age: 36 Year
  Sex: Male

DRUGS (9)
  1. TAMIFLU [Suspect]
     Active Substance: OSELTAMIVIR PHOSPHATE
     Indication: Product used for unknown indication
     Route: 048
  2. DELTASONE [Concomitant]
     Active Substance: PREDNISONE
  3. PULMICORT TURBUHALER [Concomitant]
     Active Substance: BUDESONIDE
  4. REVATIO [Concomitant]
     Active Substance: SILDENAFIL CITRATE
  5. NINTEDANIB [Concomitant]
     Active Substance: NINTEDANIB
  6. ALBUTEROL [Concomitant]
     Active Substance: ALBUTEROL
  7. ZOLOFT [Concomitant]
     Active Substance: SERTRALINE HYDROCHLORIDE
  8. TYVASO [Concomitant]
     Active Substance: TREPROSTINIL
  9. VITAMIN D2 [Concomitant]
     Active Substance: ERGOCALCIFEROL

REACTIONS (9)
  - Interstitial lung disease [Unknown]
  - Thrombocytopenia [Unknown]
  - Traumatic haemothorax [Unknown]
  - Hypernatraemia [Unknown]
  - Leukocytosis [Unknown]
  - Hyperglycaemia [Unknown]
  - Bronchiectasis [Unknown]
  - Hypoxia [Unknown]
  - Diarrhoea [Unknown]
